FAERS Safety Report 9677989 (Version 1)
Quarter: 2013Q4

REPORT INFORMATION
  Report Type: Spontaneous
  Country: JP (occurrence: JP)
  Receive Date: 20131108
  Receipt Date: 20131108
  Transmission Date: 20140711
  Serious: Yes (Other)
  Sender: FDA-Public Use
  Company Number: JP-ASTRAZENECA-2013SE80540

PATIENT
  Age: 68 Year
  Sex: Female

DRUGS (3)
  1. DIPRIVAN [Suspect]
     Indication: INDUCTION AND MAINTENANCE OF ANAESTHESIA
     Route: 042
  2. REMIFENTANIL [Suspect]
     Indication: INDUCTION AND MAINTENANCE OF ANAESTHESIA
  3. ROCURONIUM [Suspect]
     Indication: INDUCTION OF ANAESTHESIA

REACTIONS (1)
  - Stress cardiomyopathy [Recovered/Resolved]
